FAERS Safety Report 9375283 (Version 3)
Quarter: 2014Q2

REPORT INFORMATION
  Report Type: Spontaneous
  Country: IT (occurrence: IT)
  Receive Date: 20130628
  Receipt Date: 20140409
  Transmission Date: 20141212
  Serious: Yes (Hospitalization)
  Sender: FDA-Public Use
  Company Number: IT-UCBSA-090365

PATIENT
  Age: 45 Year
  Sex: Male

DRUGS (2)
  1. CIMZIA [Suspect]
     Indication: RHEUMATOID ARTHRITIS
     Dosage: FREQUENCY : CYCLIC , 200 MG SOLUTION FOR INJECTION
     Route: 058
     Dates: start: 20130617, end: 20130617
  2. PLAQUENIL [Concomitant]
     Dosage: 30 TABLETS
     Route: 048
     Dates: start: 20060101, end: 20130618

REACTIONS (3)
  - Chest pain [Recovered/Resolved]
  - Dyspnoea [Recovered/Resolved]
  - Urticaria [Recovered/Resolved]
